FAERS Safety Report 12031804 (Version 1)
Quarter: 2016Q1

REPORT INFORMATION
  Report Type: Report from Study
  Country: US (occurrence: US)
  Receive Date: 20160207
  Receipt Date: 20160207
  Transmission Date: 20160526
  Serious: Yes (Other)
  Sender: FDA-Public Use
  Company Number: US-ABBVIE-15K-163-1510935-00

PATIENT
  Age: 77 Year
  Sex: Male
  Weight: 83.99 kg

DRUGS (2)
  1. TAMSULOSIN [Concomitant]
     Active Substance: TAMSULOSIN
     Indication: BENIGN PROSTATIC HYPERPLASIA
  2. HUMIRA [Suspect]
     Active Substance: ADALIMUMAB
     Indication: PSORIATIC ARTHROPATHY
     Route: 058
     Dates: start: 2010, end: 201511

REACTIONS (6)
  - Furuncle [Not Recovered/Not Resolved]
  - Incision site infection [Recovered/Resolved]
  - Furuncle [Recovered/Resolved]
  - Furuncle [Recovered/Resolved]
  - Cholelithiasis [Recovered/Resolved]
  - Musculoskeletal discomfort [Recovered/Resolved]

NARRATIVE: CASE EVENT DATE: 2013
